FAERS Safety Report 20589479 (Version 1)
Quarter: 2022Q1

REPORT INFORMATION
  Report Type: Spontaneous
  Country: US (occurrence: None)
  Receive Date: 20220311
  Receipt Date: 20220311
  Transmission Date: 20220424
  Serious: Yes (Hospitalization, Other)
  Sender: FDA-Public Use
  Company Number: None

PATIENT
  Age: 98 Year
  Sex: Female
  Weight: 58.5 kg

DRUGS (7)
  1. SOTROVIMAB [Suspect]
     Active Substance: SOTROVIMAB
     Indication: COVID-19
  2. CARVEDILOL [Concomitant]
     Active Substance: CARVEDILOL
  3. ELIQUIS [Concomitant]
     Active Substance: APIXABAN
  4. LISINOPRIL [Concomitant]
     Active Substance: LISINOPRIL
  5. Fureosimude [Concomitant]
  6. ASPIRIN [Concomitant]
     Active Substance: ASPIRIN
  7. VITAMIN D [Concomitant]
     Active Substance: VITAMIN D NOS

REACTIONS (12)
  - Dyspnoea [None]
  - Respiratory rate increased [None]
  - Confusional state [None]
  - Anxiety [None]
  - Condition aggravated [None]
  - Asthenia [None]
  - Fatigue [None]
  - Decreased appetite [None]
  - Feeding disorder [None]
  - Dehydration [None]
  - Incoherent [None]
  - Diet refusal [None]

NARRATIVE: CASE EVENT DATE: 20220307
